FAERS Safety Report 16039774 (Version 1)
Quarter: 2019Q1

REPORT INFORMATION
  Report Type: Report from Study
  Country: ES (occurrence: ES)
  Receive Date: 20190306
  Receipt Date: 20190306
  Transmission Date: 20190418
  Serious: Yes (Hospitalization)
  Sender: FDA-Public Use
  Company Number: ES-ACCORD-110443

PATIENT
  Age: 84 Year
  Sex: Male

DRUGS (7)
  1. PANTOPRAZOLE [Concomitant]
     Active Substance: PANTOPRAZOLE
     Dosage: 40 MG DAY
     Route: 042
     Dates: start: 20171016
  2. ENOXAPARIN [Concomitant]
     Active Substance: ENOXAPARIN
     Dosage: 50 MG DAY
     Route: 058
     Dates: start: 20171016
  3. PARACETAMOL [Concomitant]
     Active Substance: ACETAMINOPHEN
     Dosage: 1GR/8H
     Route: 042
     Dates: start: 20171016
  4. EPLERENONE. [Suspect]
     Active Substance: EPLERENONE
     Indication: PRODUCT USED FOR UNKNOWN INDICATION
     Dosage: 50 MG CO
     Route: 048
     Dates: start: 20171018, end: 20171026
  5. FUROSEMIDE. [Interacting]
     Active Substance: FUROSEMIDE
     Indication: PRODUCT USED FOR UNKNOWN INDICATION
     Dosage: 40MG/8H
     Route: 042
     Dates: start: 20171016, end: 20171026
  6. ADIRO [Concomitant]
     Active Substance: ASPIRIN
     Dosage: 0-1-0, ADIRO 100
     Route: 048
     Dates: start: 20171016
  7. AMIODARONE [Concomitant]
     Active Substance: AMIODARONE
     Dosage: 600 MG DAY IV FOR 3 DAYS FOLLOWED BY 200 MG DAY
     Route: 042
     Dates: start: 20171019

REACTIONS (2)
  - Hyponatraemia [Recovered/Resolved]
  - Drug interaction [Unknown]

NARRATIVE: CASE EVENT DATE: 20171026
